FAERS Safety Report 7924932-2 (Version None)
Quarter: 2011Q4

REPORT INFORMATION
  Report Type: 
  Country: None (occurrence: None)
  Receive Date: 20111118
  Receipt Date: 20110330
  Transmission Date: 20120403
  Serious: No
  Sender: FDA-Public Use
  Company Number: US-AMGEN-USASP2011014619

PATIENT
  Age: 2 Week
  Sex: Male

DRUGS (1)
  1. ENBREL [Suspect]
     Indication: RHEUMATOID ARTHRITIS
     Dosage: 50 MG, QWK
     Dates: start: 20070101

REACTIONS (5)
  - THERAPEUTIC RESPONSE DECREASED [None]
  - ARTHRITIS [None]
  - COUGH [None]
  - NEEDLE ISSUE [None]
  - INJECTION SITE HAEMORRHAGE [None]
